FAERS Safety Report 9146777 (Version 1)
Quarter: 2013Q1

REPORT INFORMATION
  Report Type: Spontaneous
  Country: US (occurrence: None)
  Receive Date: 20130228
  Receipt Date: 20130228
  Transmission Date: 20140127
  Serious: No
  Sender: FDA-Public Use
  Company Number: None

PATIENT
  Sex: Male
  Weight: 17.3 kg

DRUGS (2)
  1. LEVITERACETAM [Suspect]
     Indication: ANGELMAN^S SYNDROME
     Dosage: 5ML P.O. BID
     Dates: start: 201107
  2. LEVITERACETAM [Suspect]
     Indication: EPILEPSY
     Dosage: 5ML P.O. BID
     Dates: start: 201107

REACTIONS (1)
  - Convulsion [None]
